FAERS Safety Report 9707806 (Version 3)
Quarter: 2014Q1

REPORT INFORMATION
  Report Type: Spontaneous
  Country: NL (occurrence: NL)
  Receive Date: 20131125
  Receipt Date: 20140312
  Transmission Date: 20141002
  Serious: Yes (Other)
  Sender: FDA-Public Use
  Company Number: NL-NOVOPROD-392322

PATIENT
  Sex: Male

DRUGS (1)
  1. NOVOMIX 30 FLEXPEN [Suspect]
     Indication: PRODUCT USED FOR UNKNOWN INDICATION
     Dosage: UNK
     Route: 065

REACTIONS (4)
  - Syncope [Recovered/Resolved with Sequelae]
  - Tooth fracture [Unknown]
  - Malaise [Unknown]
  - Hyperhidrosis [Unknown]
